FAERS Safety Report 8135628-9 (Version None)
Quarter: 2012Q1

REPORT INFORMATION
  Report Type: 
  Country: None (occurrence: None)
  Receive Date: 20120214
  Receipt Date: 20120209
  Transmission Date: 20120608
  Serious: Yes (Death, Hospitalization, Other)
  Sender: FDA-Public Use
  Company Number: PHHY2011IL63095

PATIENT
  Sex: Female

DRUGS (5)
  1. CHEMOTHERAPEUTICS [Concomitant]
  2. SANDOSTATIN LAR [Suspect]
     Dosage: 30 MG, EVERY 28 DAYS
     Dates: start: 20120119
  3. SANDOSTATIN LAR [Suspect]
     Indication: CARCINOID TUMOUR
     Dosage: 30 MG, EVERY 28 DAYS
     Dates: start: 20070802
  4. SANDOSTATIN LAR [Suspect]
     Dosage: 30 MG EVERY 28 DAYS
     Dates: start: 20110710
  5. SANDOSTATIN LAR [Suspect]
     Dosage: 30 MG EVERY 28 DAYS
     Dates: start: 20110831

REACTIONS (8)
  - THROMBOCYTOPENIA [None]
  - MYELODYSPLASTIC SYNDROME [None]
  - HAEMORRHAGE [None]
  - HERPES OPHTHALMIC [None]
  - NEOPLASM MALIGNANT [None]
  - ANAEMIA [None]
  - RENAL FAILURE ACUTE [None]
  - OEDEMA [None]
